FAERS Safety Report 8839954 (Version 1)
Quarter: 2012Q4

REPORT INFORMATION
  Report Type: 
  Country: TW (occurrence: TW)
  Receive Date: 20121015
  Receipt Date: 20121015
  Transmission Date: 20130627
  Serious: Yes (Hospitalization)
  Sender: FDA-Public Use
  Company Number: TW-SANOFI-AVENTIS-2012SA074401

PATIENT
  Age: 80 Year
  Sex: Male

DRUGS (25)
  1. RIFINAH [Suspect]
     Indication: TUBERCULOSIS
     Dosage: 2 # units of rifinah
     Route: 065
     Dates: start: 20111120, end: 20111123
  2. AMARYL [Concomitant]
  3. ACETYLSALICYLIC ACID [Concomitant]
  4. BAKTAR [Concomitant]
  5. PYRIDOXINE [Concomitant]
  6. CIPROFLOXACIN [Concomitant]
  7. CRAVIT [Concomitant]
  8. LANOXIN [Concomitant]
  9. MYAMBUTOL [Concomitant]
  10. GLUCOPHAGE [Concomitant]
  11. TAMSULOSIN [Concomitant]
  12. HERBESSER [Concomitant]
  13. INAH [Concomitant]
  14. LASIX [Concomitant]
  15. MOSAPRIDE [Concomitant]
  16. CHLORPROMAZINE [Concomitant]
  17. NATEGLINIDE [Concomitant]
  18. PRIMPERAN [Concomitant]
  19. PROHEPARUM [Concomitant]
  20. PYRAZINAMIDE [Concomitant]
  21. RIFAMPIN [Concomitant]
  22. RIFATER [Concomitant]
  23. RIFABUTIN [Concomitant]
  24. PIPERACILLIN/TAZOBACTAM [Concomitant]
     Dosage: 2 VIALS
  25. CEFTAZIDIME [Concomitant]
     Dosage: 2 vials

REACTIONS (1)
  - Jaundice cholestatic [Recovered/Resolved]
